FAERS Safety Report 6814115-1 (Version None)
Quarter: 2010Q3

REPORT INFORMATION
  Report Type: 
  Country: None (occurrence: None)
  Receive Date: 20100702
  Receipt Date: 20091210
  Transmission Date: 20110219
  Serious: No
  Sender: FDA-Public Use
  Company Number: A0834585A

PATIENT
  Age: 61 Year
  Sex: Female

DRUGS (9)
  1. ADVAIR DISKUS 100/50 [Suspect]
     Indication: ASTHMA
     Dosage: 2PUFF TWICE PER DAY
     Route: 055
     Dates: start: 20040101
  2. ADVAIR DISKUS 100/50 [Suspect]
     Dosage: 1PUFF TWICE PER DAY
     Route: 055
     Dates: start: 20010101, end: 20040101
  3. SIMVASTATIN [Concomitant]
  4. CALCIUM CARBONATE [Concomitant]
  5. ZINC [Concomitant]
  6. VITAMIN E [Concomitant]
  7. VITAMIN C [Concomitant]
  8. LOVAZA [Concomitant]
  9. VITAMIN D [Concomitant]

REACTIONS (4)
  - CAPILLARY FRAGILITY [None]
  - DRUG EFFECT DECREASED [None]
  - DYSPHONIA [None]
  - EPISTAXIS [None]
